FAERS Safety Report 15174159 (Version 2)
Quarter: 2018Q4

REPORT INFORMATION
  Report Type: Report from Study
  Country: US (occurrence: US)
  Receive Date: 20180720
  Receipt Date: 20181017
  Transmission Date: 20190204
  Serious: No
  Sender: FDA-Public Use
  Company Number: US-AMGEN-USASL2018071901

PATIENT
  Age: 71 Year
  Sex: Female

DRUGS (4)
  1. REPATHA [Suspect]
     Active Substance: EVOLOCUMAB
     Dosage: 140 MG, QMO
     Route: 065
  2. REPATHA [Suspect]
     Active Substance: EVOLOCUMAB
     Indication: BLOOD CHOLESTEROL INCREASED
     Dosage: 140 MG, Q2WK
     Route: 065
  3. FENOFIBRATE. [Suspect]
     Active Substance: FENOFIBRATE
     Indication: ARTHRITIS
     Dosage: UNK
     Route: 065
  4. REPATHA [Suspect]
     Active Substance: EVOLOCUMAB
     Indication: HYPERCHOLESTEROLAEMIA
     Dosage: 140 MG, QMO
     Route: 065
     Dates: start: 201805

REACTIONS (9)
  - Upper respiratory tract infection [Unknown]
  - Joint stiffness [Unknown]
  - Dyspnoea [Recovered/Resolved]
  - Cystitis [Unknown]
  - Pharyngitis streptococcal [Recovering/Resolving]
  - Headache [Recovered/Resolved]
  - Formication [Unknown]
  - Injection site erythema [Unknown]
  - Gout [Recovering/Resolving]

NARRATIVE: CASE EVENT DATE: 2018
